FAERS Safety Report 4478873-6 (Version None)
Quarter: 2004Q4

REPORT INFORMATION
  Report Type: 
  Country: None (occurrence: None)
  Receive Date: 20041014
  Receipt Date: 20040930
  Transmission Date: 20050328
  Serious: Yes (Hospitalization)
  Sender: FDA-Public Use
  Company Number: 2004231578DE

PATIENT
  Age: 43 Year
  Weight: 59 kg

DRUGS (3)
  1. FARMORUBICIN(EPIRUBICIN HYDROCHLORIDE) POWDER, STERILE [Suspect]
     Indication: BREAST CANCER
     Dosage: 170 MG, CYCLE 1, IV
     Route: 042
     Dates: start: 20040817
  2. FLUOROURACIL [Suspect]
     Indication: BREAST CANCER
     Dosage: 850 MG, CYCLE 1, IV
     Route: 042
     Dates: start: 20040817
  3. CYCLOPHOSPHAMIDE [Suspect]
     Indication: BREAST CANCER
     Dosage: 860 MG, CYCLE 1, IV
     Route: 042
     Dates: start: 20040817

REACTIONS (3)
  - FATIGUE [None]
  - LEUKOPENIA [None]
  - NAUSEA [None]
